FAERS Safety Report 22097886 (Version 2)
Quarter: 2023Q1

REPORT INFORMATION
  Report Type: Spontaneous
  Country: KE (occurrence: KE)
  Receive Date: 20230315
  Receipt Date: 20230322
  Transmission Date: 20230417
  Serious: Yes (Other)
  Sender: FDA-Public Use
  Company Number: KE-GE HEALTHCARE-2023CSU001514

PATIENT
  Age: 32 Year
  Sex: Male
  Weight: 76 kg

DRUGS (2)
  1. VISIPAQUE [Suspect]
     Active Substance: IODIXANOL
     Indication: Angiogram
     Dosage: 70 ML AT 4 ML/SEC, ONCE
     Route: 042
     Dates: start: 20230205, end: 20230205
  2. VISIPAQUE [Suspect]
     Active Substance: IODIXANOL
     Indication: Bicuspid aortic valve

REACTIONS (3)
  - Blister [Recovered/Resolved]
  - Urticaria [Recovered/Resolved]
  - Rash [Recovered/Resolved]

NARRATIVE: CASE EVENT DATE: 20230205
